FAERS Safety Report 21562843 (Version 1)
Quarter: 2022Q4

REPORT INFORMATION
  Report Type: Spontaneous
  Country: US (occurrence: US)
  Receive Date: 20221107
  Receipt Date: 20221107
  Transmission Date: 20230113
  Serious: Yes (Other)
  Sender: FDA-Public Use
  Company Number: US-JNJFOC-20221062014

PATIENT
  Age: 52 Year
  Sex: Male
  Weight: 56.750 kg

DRUGS (1)
  1. PREZCOBIX [Suspect]
     Active Substance: COBICISTAT\DARUNAVIR ETHANOLATE
     Indication: HIV infection
     Route: 048
     Dates: start: 2015

REACTIONS (4)
  - Neuropathy peripheral [Unknown]
  - Migraine [Unknown]
  - Diarrhoea [Unknown]
  - Weight decreased [Unknown]
